FAERS Safety Report 9165351 (Version 1)
Quarter: 2013Q1

REPORT INFORMATION
  Report Type: Spontaneous
  Country: TR (occurrence: TR)
  Receive Date: 20130315
  Receipt Date: 20130315
  Transmission Date: 20140127
  Serious: Yes (Other)
  Sender: FDA-Public Use
  Company Number: PHHY2013TR024751

PATIENT
  Age: 62 Year
  Sex: Male

DRUGS (2)
  1. SANDOSTATIN LAR [Suspect]
     Indication: NEUROENDOCRINE TUMOUR
     Dosage: 20 MG, EVERY 28 DAYS
     Route: 030
     Dates: start: 20101026
  2. SANDOSTATIN LAR [Suspect]
     Dosage: 20 MG, EVERY 28 DAYS
     Route: 030
     Dates: start: 20130311

REACTIONS (1)
  - Hypoglycaemic coma [Recovered/Resolved]
